FAERS Safety Report 25220074 (Version 1)
Quarter: 2025Q2

REPORT INFORMATION
  Report Type: Report from Study
  Country: US (occurrence: US)
  Receive Date: 20250421
  Receipt Date: 20250421
  Transmission Date: 20250717
  Serious: No
  Sender: AVERITAS
  Company Number: US-GRUNENTHAL-2025-104600

PATIENT
  Sex: Male

DRUGS (1)
  1. QUTENZA [Suspect]
     Active Substance: CAPSAICIN
     Indication: Diabetic neuropathy
     Route: 061
     Dates: start: 20250121, end: 20250121

REACTIONS (2)
  - Application site pain [Unknown]
  - Pain of skin [Unknown]
